FAERS Safety Report 4870442-9 (Version None)
Quarter: 2006Q1

REPORT INFORMATION
  Report Type: 
  Country: None (occurrence: None)
  Receive Date: 20060103
  Receipt Date: 20050518
  Transmission Date: 20060701
  Serious: No
  Sender: FDA-Public Use
  Company Number: US-BRISTOL-MYERS SQUIBB COMPANY-12973368

PATIENT
  Age: 88 Year
  Sex: Male
  Weight: 69 kg

DRUGS (3)
  1. SINEMET [Suspect]
     Indication: PARKINSON'S DISEASE
  2. TRAZODONE HCL [Suspect]
  3. LEVOXYL [Suspect]

REACTIONS (4)
  - AGITATION [None]
  - DYSSTASIA [None]
  - PARKINSON'S DISEASE [None]
  - SOMNOLENCE [None]
